FAERS Safety Report 25988685 (Version 1)
Quarter: 2025Q4

REPORT INFORMATION
  Report Type: Spontaneous
  Country: CA (occurrence: CA)
  Receive Date: 20251103
  Receipt Date: 20251103
  Transmission Date: 20260118
  Serious: Yes (Other)
  Sender: ALEXION PHARMACEUTICALS
  Company Number: CA-AstraZeneca-CH-00981256A

PATIENT

DRUGS (2)
  1. TAGRISSO [Suspect]
     Active Substance: OSIMERTINIB
  2. RYBREVANT [Concomitant]
     Active Substance: AMIVANTAMAB-VMJW
     Route: 065

REACTIONS (1)
  - Malignant neoplasm progression [Unknown]
